FAERS Safety Report 6182612-0 (Version None)
Quarter: 2009Q2

REPORT INFORMATION
  Report Type: 
  Country: None (occurrence: None)
  Receive Date: 20090507
  Receipt Date: 20090430
  Transmission Date: 20091009
  Serious: Yes (Hospitalization, Other)
  Sender: FDA-Public Use
  Company Number: PHEH2008US02087

PATIENT
  Weight: 80 kg

DRUGS (14)
  1. TASIGNA [Suspect]
     Indication: CHRONIC MYELOID LEUKAEMIA
     Dosage: 400 MG, BID
     Route: 048
     Dates: start: 20071211, end: 20080307
  2. TASIGNA [Suspect]
     Dosage: 400 MG, QD
     Route: 048
     Dates: start: 20080307, end: 20080828
  3. TASIGNA [Suspect]
     Dosage: 400MG QAM AND 200MG QPM
     Route: 048
     Dates: start: 20080328, end: 20080404
  4. TASIGNA [Suspect]
     Dosage: 400 MG, QD
     Route: 048
     Dates: start: 20080404, end: 20080503
  5. TASIGNA [Suspect]
     Dosage: 400 MG QD (SPORADICALLY)
     Dates: start: 20080503, end: 20090201
  6. TASIGNA [Suspect]
     Dosage: 200 MG, QD
     Route: 048
     Dates: start: 20090201, end: 20090417
  7. AMLODIPINE [Concomitant]
     Indication: HYPERTENSION
     Dosage: 5 MG, QD
     Route: 048
  8. ASPIRIN [Concomitant]
     Indication: CORONARY ARTERY DISEASE
     Dosage: 325 MG, QD
     Route: 048
  9. CELEXA [Concomitant]
     Indication: DEPRESSION
     Dosage: 10 MG, QD
     Route: 048
  10. SYNTHROID [Concomitant]
     Indication: HYPOTHYROIDISM
     Dosage: 175 MCG QD
     Route: 048
  11. MEVACOR [Concomitant]
     Indication: HYPERLIPIDAEMIA
     Dosage: 40 MG, QD
     Route: 048
  12. METOPROLOL [Concomitant]
     Indication: CORONARY ARTERY DISEASE
     Dosage: 25 MG, BID
     Route: 048
  13. AMBIEN [Concomitant]
     Dosage: 10 MG PRN SLEEP
  14. NITROGLYCERIN [Concomitant]
     Indication: ANGINA PECTORIS
     Dosage: 0.4 MG PRN CP
     Route: 060

REACTIONS (13)
  - ABDOMINAL PAIN [None]
  - ANGINA PECTORIS [None]
  - BRAIN NATRIURETIC PEPTIDE INCREASED [None]
  - CARDIAC FAILURE CONGESTIVE [None]
  - CARDIOMEGALY [None]
  - CHEST DISCOMFORT [None]
  - COUGH [None]
  - DYSPNOEA [None]
  - DYSPNOEA EXERTIONAL [None]
  - NECK PAIN [None]
  - OEDEMA PERIPHERAL [None]
  - PAINFUL RESPIRATION [None]
  - PLEURAL EFFUSION [None]
